FAERS Safety Report 8830602 (Version 1)
Quarter: 2012Q4

REPORT INFORMATION
  Report Type: 
  Country: US (occurrence: US)
  Receive Date: 20121008
  Receipt Date: 20121008
  Transmission Date: 20130627
  Serious: Yes (Hospitalization, Other)
  Sender: FDA-Public Use
  Company Number: US-009507513-2010SP019044

PATIENT

DRUGS (1)
  1. NUVARING [Suspect]
     Indication: CONTRACEPTION
     Dates: start: 20040722, end: 200510

REACTIONS (7)
  - Ectopic pregnancy [Recovered/Resolved]
  - Adnexa uteri mass [Unknown]
  - Pulmonary embolism [Unknown]
  - Unintended pregnancy [Recovered/Resolved]
  - Migraine [Unknown]
  - Osteoarthritis [Unknown]
  - Fungal infection [Unknown]
